FAERS Safety Report 22199633 (Version 1)
Quarter: 2023Q2

REPORT INFORMATION
  Report Type: Spontaneous
  Country: PL (occurrence: None)
  Receive Date: 20230412
  Receipt Date: 20230412
  Transmission Date: 20230722
  Serious: Yes (Death, Hospitalization)
  Sender: FDA-Public Use
  Company Number: PL-ROCHE-3326435

PATIENT
  Age: 69 Year
  Sex: Female

DRUGS (2)
  1. TECENTRIQ [Suspect]
     Active Substance: ATEZOLIZUMAB
     Indication: Small cell lung cancer
     Route: 041
     Dates: start: 20230215
  2. TECENTRIQ [Suspect]
     Active Substance: ATEZOLIZUMAB
     Indication: Superior vena cava syndrome

REACTIONS (3)
  - Sepsis [Unknown]
  - Diabetes mellitus inadequate control [Unknown]
  - Death [Fatal]

NARRATIVE: CASE EVENT DATE: 20230308
